FAERS Safety Report 18505772 (Version 2)
Quarter: 2020Q4

REPORT INFORMATION
  Report Type: Report from Study
  Country: US (occurrence: US)
  Receive Date: 20201116
  Receipt Date: 20201120
  Transmission Date: 20210114
  Serious: Yes (Hospitalization)
  Sender: FDA-Public Use
  Company Number: NVSC2020US298949

PATIENT
  Age: 75 Year
  Sex: Male

DRUGS (1)
  1. ENTRESTO [Suspect]
     Active Substance: SACUBITRIL\VALSARTAN
     Indication: CARDIAC FAILURE
     Dosage: 50 MG, BID
     Route: 048
     Dates: start: 20201015

REACTIONS (3)
  - Oesophageal rupture [Recovering/Resolving]
  - Oesophageal haemorrhage [Recovering/Resolving]
  - Blood pressure systolic decreased [Unknown]

NARRATIVE: CASE EVENT DATE: 20201025
